FAERS Safety Report 9713361 (Version 2)
Quarter: 2016Q1

REPORT INFORMATION
  Report Type: Spontaneous
  Country: PL (occurrence: PL)
  Receive Date: 20131126
  Receipt Date: 20160208
  Transmission Date: 20160526
  Serious: Yes (Hospitalization, Other)
  Sender: FDA-Public Use
  Company Number: PL-PFIZER INC-2013336592

PATIENT
  Age: 30 Year
  Sex: Male

DRUGS (3)
  1. OLANZAPINE. [Suspect]
     Active Substance: OLANZAPINE
     Dosage: HIGH DOSES
     Route: 048
  2. CLENBUTEROL [Suspect]
     Active Substance: CLENBUTEROL
     Indication: WEIGHT DECREASED
     Dosage: 100 TABLETS
     Route: 048
  3. ALPRAZOLAM. [Suspect]
     Active Substance: ALPRAZOLAM
     Dosage: HIGH DOSES
     Route: 048

REACTIONS (10)
  - Suicide attempt [Unknown]
  - Overdose [Unknown]
  - Hypokalaemia [Recovered/Resolved]
  - Somnolence [Unknown]
  - Hypothermia [Recovered/Resolved]
  - Tachycardia [Recovered/Resolved]
  - Blood pressure decreased [Unknown]
  - Drug screen positive [Unknown]
  - Dyspnoea [Recovered/Resolved]
  - Tremor [Unknown]
